FAERS Safety Report 22534834 (Version 1)
Quarter: 2023Q2

REPORT INFORMATION
  Report Type: Other
  Country: US (occurrence: US)
  Receive Date: 20230608
  Receipt Date: 20230608
  Transmission Date: 20230722
  Serious: Yes (Other)
  Sender: FDA-Public Use
  Company Number: US-002147023-NVSC2023US127397

PATIENT
  Age: 10 Year
  Sex: Male

DRUGS (1)
  1. OMALIZUMAB [Suspect]
     Active Substance: OMALIZUMAB
     Indication: Eczema
     Dosage: 300 MG (2 DOSES)
     Route: 065

REACTIONS (2)
  - Anaphylactic reaction [Unknown]
  - Product use in unapproved indication [Unknown]
